FAERS Safety Report 6157664-4 (Version None)
Quarter: 2009Q2

REPORT INFORMATION
  Report Type: 
  Country: None (occurrence: None)
  Receive Date: 20090414
  Receipt Date: 20090414
  Transmission Date: 20091009
  Serious: Yes (Hospitalization)
  Sender: FDA-Public Use
  Company Number: None

PATIENT
  Age: 57 Year
  Sex: Male
  Weight: 108.5 kg

DRUGS (6)
  1. SUTENT [Suspect]
     Indication: HEPATIC NEOPLASM MALIGNANT
     Dosage: 37.5MG QD PO
     Route: 048
     Dates: start: 20090223, end: 20090326
  2. CAPECITABINE 1000MG PER MT/SQ [Suspect]
     Dosage: 2000MG QAM, 200 MG QPM BID PO
     Route: 048
     Dates: start: 20090223, end: 20090326
  3. PROTONIX [Concomitant]
  4. ATIVAN [Concomitant]
  5. LOPERAMIDE HCL [Concomitant]
  6. LOMOTIL [Concomitant]

REACTIONS (1)
  - OESOPHAGEAL VARICES HAEMORRHAGE [None]
